FAERS Safety Report 8993167 (Version 1)
Quarter: 2013Q1

REPORT INFORMATION
  Report Type: Spontaneous
  Country: JP (occurrence: JP)
  Receive Date: 20130102
  Receipt Date: 20130102
  Transmission Date: 20140127
  Serious: Yes (Death)
  Sender: FDA-Public Use
  Company Number: JP-ROCHE-1174202

PATIENT
  Age: 65 Year
  Sex: Female
  Weight: 60 kg

DRUGS (6)
  1. AVASTIN [Suspect]
     Indication: MALIGNANT ANORECTAL NEOPLASM
     Route: 041
     Dates: start: 20080715, end: 20090213
  2. AVASTIN [Suspect]
     Indication: MALIGNANT ANORECTAL NEOPLASM
     Route: 041
     Dates: start: 20091214, end: 20110127
  3. 5-FU [Concomitant]
     Indication: MALIGNANT ANORECTAL NEOPLASM
     Route: 040
     Dates: start: 20080715, end: 20090213
  4. 5-FU [Concomitant]
     Indication: MALIGNANT ANORECTAL NEOPLASM
     Route: 041
     Dates: start: 20080715, end: 20090213
  5. ISOVORIN [Concomitant]
     Indication: MALIGNANT ANORECTAL NEOPLASM
     Route: 041
     Dates: start: 20080715, end: 20090213
  6. ELPLAT [Concomitant]
     Indication: MALIGNANT ANORECTAL NEOPLASM
     Route: 041
     Dates: start: 20080715, end: 20090213

REACTIONS (2)
  - Disease progression [Fatal]
  - Hypertension [Recovering/Resolving]
